FAERS Safety Report 9647365 (Version 1)
Quarter: 2013Q4

REPORT INFORMATION
  Report Type: Spontaneous
  Country: PH (occurrence: PH)
  Receive Date: 20131027
  Receipt Date: 20131027
  Transmission Date: 20140711
  Serious: Yes (Death, Other)
  Sender: FDA-Public Use
  Company Number: PH-MERCK-1310PHL010860

PATIENT
  Sex: Male

DRUGS (3)
  1. JANUVIA [Suspect]
     Dosage: 50 MG, QD
     Route: 048
  2. COZAAR [Suspect]
     Route: 048
  3. EZETROL [Suspect]
     Route: 048

REACTIONS (5)
  - Death [Fatal]
  - Coronary artery bypass [Unknown]
  - Prostatic disorder [Unknown]
  - Chronic obstructive pulmonary disease [Unknown]
  - Emphysema [Unknown]
